FAERS Safety Report 14695448 (Version 11)
Quarter: 2018Q3

REPORT INFORMATION
  Report Type: Spontaneous
  Country: DE (occurrence: DE)
  Receive Date: 20180329
  Receipt Date: 20180914
  Transmission Date: 20181010
  Serious: Yes (Other)
  Sender: FDA-Public Use
  Company Number: PHHY2018DE054708

PATIENT
  Age: 56 Year
  Sex: Female
  Weight: 59 kg

DRUGS (13)
  1. RAMIPRIL. [Concomitant]
     Active Substance: RAMIPRIL
     Dosage: UNKNOWN
     Route: 065
  2. L?THYROXINE [Concomitant]
     Active Substance: LEVOTHYROXINE
     Indication: AUTOIMMUNE HYPOTHYROIDISM
     Dosage: 50 UG, QD
     Route: 065
  3. PROGESTAN [Suspect]
     Active Substance: PROGESTERONE
     Indication: PREVENTION OF ENDOMETRIAL HYPERPLASIA
     Dosage: 1 DF, QD (1 CAPSULE DAILY (FROM JAN MAY 2017: 1 CAPSULE EVERY SECOND DAY; STOPPED FROM MAY NOV 2017)
     Route: 048
     Dates: start: 2012, end: 201701
  4. PROGESTAN [Suspect]
     Active Substance: PROGESTERONE
     Dosage: 1 DF, QOD (1 CAPSULE EVERY SECOND EVENING)
     Route: 048
     Dates: start: 201701, end: 201705
  5. GYNOKADIN [Suspect]
     Active Substance: ESTRADIOL
     Indication: MENOPAUSAL SYMPTOMS
     Dosage: 2 DF, QD (2 PUFFS DAILY)
     Route: 062
     Dates: start: 2012, end: 201701
  6. ESTRADIOL. [Suspect]
     Active Substance: ESTRADIOL
     Indication: MENOPAUSAL SYMPTOMS
     Dosage: 2 DF, UNK (2 PUFF DAILY) ((UNKNOWN, 2 IN 1D)
     Route: 062
     Dates: start: 2012, end: 201701
  7. GYNOKADIN [Suspect]
     Active Substance: ESTRADIOL
     Indication: HORMONE REPLACEMENT THERAPY
     Dosage: 1 PUFF DAILY.
     Route: 062
     Dates: start: 201701, end: 201705
  8. PROGESTAN [Suspect]
     Active Substance: PROGESTERONE
     Dosage: 1 DF, QD (1 CAPSULE DAILY (1 IN 2 D))
     Route: 048
     Dates: start: 201711, end: 20180119
  9. RAMIPRIL. [Concomitant]
     Active Substance: RAMIPRIL
     Indication: HYPERTENSION
     Dosage: UNK
     Route: 065
  10. LERCANIDIPINE [Suspect]
     Active Substance: LERCANIDIPINE
     Indication: HYPERTENSION
     Dosage: UNK
     Route: 065
  11. ESTRADIOL. [Suspect]
     Active Substance: ESTRADIOL
     Indication: HORMONE REPLACEMENT THERAPY
     Dosage: 1 MG, QD (1 PUFF DAILY)
     Route: 062
     Dates: start: 201701, end: 201705
  12. GYNOKADIN [Suspect]
     Active Substance: ESTRADIOL
     Dosage: 2 DF, QD (2 PUFFS DAILY)
     Route: 062
     Dates: start: 201711, end: 20180119
  13. ESTRADIOL. [Suspect]
     Active Substance: ESTRADIOL
     Dosage: 1 MG, QD (1 PUFF DAILY, 1 IN 1 D)
     Route: 062
     Dates: start: 201711, end: 20180119

REACTIONS (11)
  - Abdominal lymphadenopathy [Not Recovered/Not Resolved]
  - Nausea [Recovering/Resolving]
  - Blood alkaline phosphatase increased [Not Recovered/Not Resolved]
  - Blood lactate dehydrogenase increased [Not Recovered/Not Resolved]
  - Gamma-glutamyltransferase increased [Not Recovered/Not Resolved]
  - Transaminases increased [Not Recovered/Not Resolved]
  - Off label use [Unknown]
  - Fatigue [Recovering/Resolving]
  - Asthenia [Recovered/Resolved]
  - Thrombocytopenia [Recovered/Resolved]
  - Ultrasound liver abnormal [Not Recovered/Not Resolved]

NARRATIVE: CASE EVENT DATE: 2017
